FAERS Safety Report 9006492 (Version 1)
Quarter: 2013Q1

REPORT INFORMATION
  Report Type: Spontaneous
  Country: IT (occurrence: IT)
  Receive Date: 20130110
  Receipt Date: 20130110
  Transmission Date: 20140127
  Serious: Yes (Other)
  Sender: FDA-Public Use
  Company Number: IT-ABBOTT-13P-083-1033685-00

PATIENT
  Age: 92 Year
  Sex: Male

DRUGS (3)
  1. KLACID [Suspect]
     Indication: PNEUMONITIS
     Dates: start: 20120816, end: 20120821
  2. CEFTRIAXONE [Concomitant]
     Indication: PNEUMONITIS
     Route: 042
     Dates: start: 20120816, end: 20120826
  3. ZITROMAX [Concomitant]
     Indication: PNEUMONITIS
     Route: 048
     Dates: start: 20120821, end: 20120824

REACTIONS (1)
  - Phlebitis [Recovered/Resolved]
